FAERS Safety Report 8545473-8 (Version None)
Quarter: 2012Q3

REPORT INFORMATION
  Report Type: 
  Country: None (occurrence: None)
  Receive Date: 20120727
  Receipt Date: 20111108
  Transmission Date: 20120928
  Serious: No
  Sender: FDA-Public Use
  Company Number: US-ASTRAZENECA-2011SE67804

PATIENT
  Age: 25 Year
  Sex: Male
  Weight: 71.7 kg

DRUGS (3)
  1. SEROQUEL [Suspect]
     Indication: INSOMNIA
     Dosage: 200 MG 2 TABLETS AT NIGHT
     Route: 048
     Dates: start: 20100101
  2. PAXIL [Concomitant]
  3. BENZTROPINE MESYLATE [Concomitant]

REACTIONS (4)
  - HALLUCINATION, AUDITORY [None]
  - DRUG DOSE OMISSION [None]
  - INSOMNIA [None]
  - OFF LABEL USE [None]
